FAERS Safety Report 15251676 (Version 1)
Quarter: 2018Q3

REPORT INFORMATION
  Report Type: Spontaneous
  Country: AU (occurrence: AU)
  Receive Date: 20180807
  Receipt Date: 20180807
  Transmission Date: 20181010
  Serious: Yes (Hospitalization)
  Sender: FDA-Public Use
  Company Number: AU-LPDUSPRD-20181355

PATIENT
  Age: 48 Year
  Sex: Female

DRUGS (3)
  1. FERINJECT [Suspect]
     Active Substance: FERRIC CARBOXYMALTOSE
     Dosage: 1000 MG: 2X 500MG VIALS (1 GM)
     Route: 041
     Dates: start: 20180716, end: 20180716
  2. MIRTAZAPINE. [Concomitant]
     Active Substance: MIRTAZAPINE
     Dosage: 15 MG, IN THE NIGHT
     Route: 048
  3. DULOXETINE. [Concomitant]
     Active Substance: DULOXETINE
     Dosage: 60 MG, IN THE MORNING
     Route: 048

REACTIONS (5)
  - Peripheral coldness [Unknown]
  - Hospitalisation [Unknown]
  - Autoscopy [Unknown]
  - Hypoaesthesia [Unknown]
  - Dizziness [Unknown]

NARRATIVE: CASE EVENT DATE: 20180716
